FAERS Safety Report 25949930 (Version 1)
Quarter: 2025Q4

REPORT INFORMATION
  Report Type: Spontaneous
  Country: US (occurrence: US)
  Receive Date: 20251022
  Receipt Date: 20251022
  Transmission Date: 20260118
  Serious: Yes (Disabling, Other)
  Sender: CB FLEET
  Company Number: US-PRESTIGE-202510-US-003449

PATIENT
  Age: 60 Year
  Sex: Female
  Weight: 109.8 kg

DRUGS (10)
  1. DEBROX [Suspect]
     Active Substance: CARBAMIDE PEROXIDE
     Indication: Excessive cerumen production
     Dosage: APPLIED 5 DROPS INTO THE LEFT EAR
     Route: 001
  2. ATORVASTATIN [Concomitant]
     Active Substance: ATORVASTATIN
  3. CINNAMON\HERBALS [Concomitant]
     Active Substance: CINNAMON\HERBALS
  4. BERBERINE [Concomitant]
     Active Substance: BERBERINE
  5. VITAMIN D2 [Concomitant]
     Active Substance: ERGOCALCIFEROL
  6. LOSARTAN [Concomitant]
     Active Substance: LOSARTAN
  7. METFORMIN [Concomitant]
     Active Substance: METFORMIN HYDROCHLORIDE
  8. METHIMAZOLE [Concomitant]
     Active Substance: METHIMAZOLE
  9. MULTI VITAMIN ONE A DAY [Concomitant]
  10. OZEMPIC [Concomitant]
     Active Substance: SEMAGLUTIDE

REACTIONS (9)
  - Tympanic membrane perforation [Not Recovered/Not Resolved]
  - Hypoacusis [Unknown]
  - Ear pain [Unknown]
  - Inner ear inflammation [Unknown]
  - Ear haemorrhage [Unknown]
  - Otitis media [Not Recovered/Not Resolved]
  - Otorrhoea [Unknown]
  - Chemical burn [Unknown]
  - Dizziness [Unknown]
